FAERS Safety Report 7038746-1 (Version None)
Quarter: 2010Q4

REPORT INFORMATION
  Report Type: 
  Country: None (occurrence: None)
  Receive Date: 20101012
  Receipt Date: 20101004
  Transmission Date: 20110411
  Serious: Yes (Hospitalization)
  Sender: FDA-Public Use
  Company Number: US-BIOGENIDEC-2010BI030335

PATIENT
  Age: 60 Year
  Sex: Female

DRUGS (3)
  1. AVONEX [Suspect]
     Indication: MULTIPLE SCLEROSIS
     Route: 030
     Dates: start: 19990901, end: 20050509
  2. AVONEX [Suspect]
     Route: 030
     Dates: start: 20080403
  3. MEDICATIONS (NOS) [Concomitant]

REACTIONS (11)
  - ADVERSE DRUG REACTION [None]
  - ARTHRALGIA [None]
  - COORDINATION ABNORMAL [None]
  - DRUG INEFFECTIVE [None]
  - DYSARTHRIA [None]
  - FURUNCLE [None]
  - HEMICEPHALALGIA [None]
  - INJECTION SITE INFECTION [None]
  - OEDEMA PERIPHERAL [None]
  - OVERDOSE [None]
  - STAPHYLOCOCCAL INFECTION [None]
